FAERS Safety Report 6761996-6 (Version None)
Quarter: 2010Q2

REPORT INFORMATION
  Report Type: 
  Country: None (occurrence: None)
  Receive Date: 20100607
  Receipt Date: 20100521
  Transmission Date: 20101027
  Serious: Yes (Death, Hospitalization)
  Sender: FDA-Public Use
  Company Number: AUR-APL-2010-01388

PATIENT
  Age: 27 Year
  Sex: Female

DRUGS (9)
  1. SUMATRIPTAN SUCCINATE [Suspect]
     Dosage: PRN
  2. ZOLPIDEM [Suspect]
  3. AZITHROMYCIN [Suspect]
     Indication: UPPER RESPIRATORY TRACT INFECTION
  4. BUPROPION HCL [Suspect]
  5. FEXOFENADINE [Suspect]
  6. IBUPROFEN [Suspect]
     Dosage: PRN
  7. TIZANIDINE HCL [Suspect]
  8. TRAMADOL HCL [Suspect]
     Dosage: PRN
  9. TRAZODONE HYDROCHLORIDE [Suspect]

REACTIONS (13)
  - ANOXIC ENCEPHALOPATHY [None]
  - BLOOD POTASSIUM DECREASED [None]
  - BRAIN DEATH [None]
  - BRAIN INJURY [None]
  - CARDIAC ARREST [None]
  - COMA [None]
  - ELECTROCARDIOGRAM QT PROLONGED [None]
  - LOSS OF CONSCIOUSNESS [None]
  - SUDDEN DEATH [None]
  - TORSADE DE POINTES [None]
  - UPPER RESPIRATORY TRACT INFECTION [None]
  - VENTRICULAR FIBRILLATION [None]
  - VENTRICULAR TACHYCARDIA [None]
